FAERS Safety Report 4279058-9 (Version None)
Quarter: 2004Q1

REPORT INFORMATION
  Report Type: 
  Country: None (occurrence: None)
  Receive Date: 20040122
  Receipt Date: 20040108
  Transmission Date: 20041129
  Serious: Yes (Disabling)
  Sender: FDA-Public Use
  Company Number: A03200301081

PATIENT
  Age: 72 Year
  Sex: Female

DRUGS (9)
  1. AMBIEN [Suspect]
     Indication: INSOMNIA
     Dosage: 10 MG HS- ORAL
     Route: 048
     Dates: start: 20001101
  2. TELMISARTAN [Concomitant]
  3. ACETYLSALICYLIC ACID SRT [Concomitant]
  4. PRAVASTATIN SODIUM [Concomitant]
  5. LORAZEPAM [Concomitant]
  6. AMILORIDE HCL AND HYDROCHLOROTHIAZIDE [Concomitant]
  7. POTASSIUM [Concomitant]
  8. CILKOSTAZOL [Concomitant]
  9. GABAPENTIN [Concomitant]

REACTIONS (7)
  - ACTIVITIES OF DAILY LIVING IMPAIRED [None]
  - ARTERIOSCLEROSIS [None]
  - DIFFICULTY IN WALKING [None]
  - INSOMNIA [None]
  - MEMORY IMPAIRMENT [None]
  - PAIN IN EXTREMITY [None]
  - RASH [None]
